FAERS Safety Report 9353976 (Version 1)
Quarter: 2013Q2

REPORT INFORMATION
  Report Type: Spontaneous
  Country: CH (occurrence: CH)
  Receive Date: 20130618
  Receipt Date: 20130618
  Transmission Date: 20140414
  Serious: Yes (Other)
  Sender: FDA-Public Use
  Company Number: CH-ASTRAZENECA-2013SE42371

PATIENT
  Age: 0 Week
  Sex: Female
  Weight: 2.5 kg

DRUGS (3)
  1. INDERAL [Suspect]
     Indication: MIGRAINE PROPHYLAXIS
     Route: 064
     Dates: start: 2012
  2. ZOMIG [Suspect]
     Indication: MIGRAINE
     Route: 064
     Dates: start: 20120714, end: 20120715
  3. RELPAX [Suspect]
     Indication: MIGRAINE
     Route: 064
     Dates: start: 20120714, end: 20120715

REACTIONS (2)
  - Premature baby [Unknown]
  - Neonatal respiratory distress syndrome [Recovered/Resolved]
